FAERS Safety Report 23499972 (Version 1)
Quarter: 2024Q1

REPORT INFORMATION
  Report Type: Spontaneous
  Country: US (occurrence: None)
  Receive Date: 20240207
  Receipt Date: 20240207
  Transmission Date: 20240410
  Serious: Yes (Other)
  Sender: FDA-Public Use
  Company Number: None

PATIENT
  Age: 41 Year
  Sex: Female
  Weight: 54 kg

DRUGS (7)
  1. XIIDRA [Suspect]
     Active Substance: LIFITEGRAST
     Indication: Dry eye
     Dates: start: 20220301, end: 20230201
  2. FISH OIL [Concomitant]
     Active Substance: FISH OIL
  3. GINGER [Concomitant]
     Active Substance: GINGER
  4. VITAMIN D [Concomitant]
     Active Substance: VITAMIN D NOS
  5. MAGNESIUM [Concomitant]
     Active Substance: MAGNESIUM
  6. IRON [Concomitant]
     Active Substance: IRON
  7. Prebiotic [Concomitant]

REACTIONS (12)
  - Rash [None]
  - Rash [None]
  - Dysgeusia [None]
  - Epistaxis [None]
  - Sinusitis [None]
  - Headache [None]
  - Throat tightness [None]
  - Chest discomfort [None]
  - Dyspnoea [None]
  - Therapy cessation [None]
  - Fungal skin infection [None]
  - Dandruff [None]

NARRATIVE: CASE EVENT DATE: 20240131
